FAERS Safety Report 17112307 (Version 1)
Quarter: 2019Q4

REPORT INFORMATION
  Report Type: Spontaneous
  Country: CN (occurrence: CN)
  Receive Date: 20191204
  Receipt Date: 20191204
  Transmission Date: 20200122
  Serious: Yes (Hospitalization, Other)
  Sender: FDA-Public Use
  Company Number: CN-PFIZER INC-2019520376

PATIENT
  Age: 68 Year
  Sex: Male
  Weight: 60 kg

DRUGS (1)
  1. NORVASC [Suspect]
     Active Substance: AMLODIPINE BESYLATE
     Indication: HYPERTENSION
     Dosage: 5 MG, 1X/DAY
     Route: 048
     Dates: start: 20190617, end: 20190621

REACTIONS (6)
  - Intentional product misuse [Unknown]
  - Blood pressure increased [Unknown]
  - Dyspnoea [Unknown]
  - Nausea [Recovering/Resolving]
  - Dizziness [Unknown]
  - Regurgitation [Recovering/Resolving]

NARRATIVE: CASE EVENT DATE: 2019
